FAERS Safety Report 22120814 (Version 1)
Quarter: 2023Q1

REPORT INFORMATION
  Report Type: Spontaneous
  Country: FR (occurrence: FR)
  Receive Date: 20230321
  Receipt Date: 20230321
  Transmission Date: 20230418
  Serious: Yes (Hospitalization)
  Sender: FDA-Public Use
  Company Number: None

PATIENT
  Age: 41 Year
  Sex: Male

DRUGS (3)
  1. ACYCLOVIR [Suspect]
     Active Substance: ACYCLOVIR
     Indication: Infection
     Dosage: 500 MILLIGRAM, QOD (1 X/48H)
     Route: 042
     Dates: start: 20230213, end: 20230223
  2. DAPTOMYCIN [Suspect]
     Active Substance: DAPTOMYCIN
     Indication: Dermo-hypodermitis
     Dosage: 350 MILLIGRAM, QD (1/D)
     Route: 042
     Dates: start: 20230215, end: 20230222
  3. IOMERON [Suspect]
     Active Substance: IOMEPROL
     Indication: Computerised tomogram
     Dosage: UNK UNK, QD (1X/D)
     Route: 042
     Dates: start: 20230216, end: 20230216

REACTIONS (2)
  - Acute kidney injury [Recovering/Resolving]
  - Eosinophilia [Not Recovered/Not Resolved]

NARRATIVE: CASE EVENT DATE: 20230216
